FAERS Safety Report 4970922-1 (Version None)
Quarter: 2006Q2

REPORT INFORMATION
  Report Type: 
  Country: None (occurrence: None)
  Receive Date: 20060411
  Receipt Date: 20060411
  Transmission Date: 20061013
  Serious: No
  Sender: FDA-Public Use
  Company Number: None

PATIENT
  Sex: Female
  Weight: 69.8539 kg

DRUGS (1)
  1. MORPHINE [Suspect]
     Indication: HEADACHE
     Dosage: 4MG  Q1H PRN IV
     Route: 042
     Dates: start: 20060221, end: 20060221

REACTIONS (6)
  - CHEST DISCOMFORT [None]
  - DRY MOUTH [None]
  - MUSCLE TIGHTNESS [None]
  - NASAL CONGESTION [None]
  - THROAT TIGHTNESS [None]
  - VISION BLURRED [None]
